FAERS Safety Report 10066588 (Version 1)
Quarter: 2014Q2

REPORT INFORMATION
  Report Type: Spontaneous
  Country: US (occurrence: US)
  Receive Date: 20140408
  Receipt Date: 20140408
  Transmission Date: 20141212
  Serious: Yes (Other)
  Sender: FDA-Public Use
  Company Number: PHHY2014US041440

PATIENT
  Sex: 0

DRUGS (2)
  1. HEPARIN [Suspect]
     Indication: CAROTID ARTERY THROMBOSIS
     Route: 042
  2. ACETYLSALICYLIC ACID [Suspect]
     Indication: ANTIPLATELET THERAPY

REACTIONS (2)
  - Carotid artery thrombosis [Unknown]
  - Drug effect incomplete [Unknown]
